FAERS Safety Report 8877703 (Version 1)
Quarter: 2012Q4

REPORT INFORMATION
  Report Type: 
  Country: FR (occurrence: FR)
  Receive Date: 20121024
  Receipt Date: 20121024
  Transmission Date: 20130627
  Serious: Yes (Other)
  Sender: FDA-Public Use
  Company Number: PHHY2012FR094584

PATIENT
  Age: 46 Year
  Sex: Male
  Weight: 75 kg

DRUGS (3)
  1. ACLASTA [Suspect]
     Indication: OSTEOPOROSIS
     Route: 042
  2. ACLASTA [Suspect]
     Route: 042
     Dates: start: 20121019
  3. TROSPIUM CHLORIDE [Concomitant]

REACTIONS (10)
  - Oropharyngeal pain [Unknown]
  - Throat irritation [Unknown]
  - Chest pain [Unknown]
  - Feeling cold [Unknown]
  - Head discomfort [Unknown]
  - Ear discomfort [Unknown]
  - Erythema [Unknown]
  - Tremor [Unknown]
  - Paraesthesia [Unknown]
  - Incorrect drug administration duration [Unknown]
